FAERS Safety Report 8622728-X (Version None)
Quarter: 2012Q3

REPORT INFORMATION
  Report Type: 
  Country: None (occurrence: None)
  Receive Date: 20120810
  Receipt Date: 20120730
  Transmission Date: 20120928
  Serious: Yes (Other)
  Sender: FDA-Public Use
  Company Number: 2012P1052323

PATIENT
  Age: 4 Year
  Sex: Female

DRUGS (1)
  1. PHENYTOIN [Suspect]
     Indication: ACCIDENTAL EXPOSURE
     Dosage: X1;PO
     Route: 048

REACTIONS (8)
  - HYPOREFLEXIA [None]
  - HEAD TITUBATION [None]
  - ACCIDENTAL DRUG INTAKE BY CHILD [None]
  - EXTENSOR PLANTAR RESPONSE [None]
  - ANTICONVULSANT DRUG LEVEL INCREASED [None]
  - NYSTAGMUS [None]
  - DEPRESSED LEVEL OF CONSCIOUSNESS [None]
  - THROMBOCYTOPENIA [None]
